FAERS Safety Report 9976376 (Version 2)
Quarter: 2014Q1

REPORT INFORMATION
  Report Type: Report from Study
  Country: US (occurrence: US)
  Receive Date: 20140306
  Receipt Date: 20140306
  Transmission Date: 20141002
  Serious: No
  Sender: FDA-Public Use
  Company Number: US-ABBVIE-13P-163-1165665-00

PATIENT
  Age: 39 Year
  Sex: Female
  Weight: 62.2 kg

DRUGS (7)
  1. HUMIRA [Suspect]
     Indication: CROHN^S DISEASE
     Route: 058
     Dates: start: 201308, end: 201308
  2. HUMIRA [Suspect]
     Dosage: 2 WEEKS AFTER INITIAL DOSE
     Route: 058
  3. HUMIRA [Suspect]
     Dosage: 2 WEEKS AFTER 80MG DOSE DOSE
     Route: 058
     Dates: start: 201309, end: 201310
  4. PROTONIX [Concomitant]
     Indication: GASTROOESOPHAGEAL REFLUX DISEASE
     Route: 048
  5. BENTYL [Concomitant]
     Indication: CROHN^S DISEASE
     Route: 048
  6. STEROID [Concomitant]
     Indication: CROHN^S DISEASE
     Route: 048
  7. FLAGYL [Concomitant]
     Indication: CROHN^S DISEASE
     Route: 048

REACTIONS (4)
  - Chills [Recovered/Resolved]
  - Nausea [Not Recovered/Not Resolved]
  - Hyperhidrosis [Recovered/Resolved]
  - Pyrexia [Recovered/Resolved]
